FAERS Safety Report 9210313 (Version 1)
Quarter: 2013Q2

REPORT INFORMATION
  Report Type: Spontaneous
  Country: CA (occurrence: CA)
  Receive Date: 20130404
  Receipt Date: 20130404
  Transmission Date: 20140414
  Serious: Yes (Hospitalization)
  Sender: FDA-Public Use
  Company Number: CA-ELI_LILLY_AND_COMPANY-CA201303009446

PATIENT
  Age: 78 Year
  Sex: Female

DRUGS (10)
  1. CALCIUM [Concomitant]
  2. VITAMIN D [Concomitant]
  3. TRILEPTAL [Concomitant]
  4. FORTEO [Suspect]
     Indication: OSTEOPOROSIS
     Dosage: 20 UG, QD
     Route: 058
     Dates: start: 20110920, end: 20130131
  5. FORTEO [Suspect]
     Dosage: 20 UG, QD
     Route: 058
     Dates: start: 20130211
  6. PLAVIX [Concomitant]
  7. PRAVASTATIN [Concomitant]
  8. AVAPRO [Concomitant]
  9. SOTALOL [Concomitant]
  10. ASAPHEN [Concomitant]

REACTIONS (1)
  - Sepsis [Unknown]
